FAERS Safety Report 7190943-0 (Version None)
Quarter: 2010Q4

REPORT INFORMATION
  Report Type: 
  Country: None (occurrence: None)
  Receive Date: 20101223
  Receipt Date: 20101217
  Transmission Date: 20110411
  Serious: Yes (Hospitalization)
  Sender: FDA-Public Use
  Company Number: US-TEVA-260348USA

PATIENT
  Age: 97 Year
  Sex: Female

DRUGS (1)
  1. NITROFURANTOIN CAPSULES USP, 100MG (MACROCRYSTALLINE) [Suspect]

REACTIONS (3)
  - DELIRIUM [None]
  - INFECTION [None]
  - PNEUMONIA [None]
